FAERS Safety Report 14458553 (Version 6)
Quarter: 2018Q2

REPORT INFORMATION
  Report Type: Other
  Country: CA (occurrence: CA)
  Receive Date: 20180130
  Receipt Date: 20180422
  Transmission Date: 20180711
  Serious: Yes (Other)
  Sender: FDA-Public Use
  Company Number: CA-APOTEX-2018AP005632

PATIENT
  Age: 58 Year
  Sex: Female

DRUGS (4)
  1. SALBUTAMOL [Suspect]
     Active Substance: ALBUTEROL
     Indication: ASTHMA
     Route: 065
  2. NUCALA [Suspect]
     Active Substance: MEPOLIZUMAB
     Indication: ASTHMA
     Dosage: UNK
     Route: 042
  3. ADVAIR HFA [Suspect]
     Active Substance: FLUTICASONE PROPIONATE\SALMETEROL XINAFOATE
     Indication: ASTHMA
     Route: 065
  4. NUCALA [Suspect]
     Active Substance: MEPOLIZUMAB
     Indication: PRODUCT USED FOR UNKNOWN INDICATION
     Dosage: 100 MG, UNK
     Route: 042

REACTIONS (11)
  - Chronic obstructive pulmonary disease [Recovered/Resolved]
  - Eye infection [Recovered/Resolved]
  - Anxiety [Recovered/Resolved]
  - Bronchitis [Recovered/Resolved]
  - Drug ineffective [Recovered/Resolved]
  - Pneumonia [Recovered/Resolved]
  - Back pain [Recovered/Resolved]
  - Neck pain [Recovered/Resolved]
  - Headache [Recovered/Resolved]
  - Depression [Recovered/Resolved]
  - Rash erythematous [Recovered/Resolved]
